FAERS Safety Report 25700284 (Version 2)
Quarter: 2025Q3

REPORT INFORMATION
  Report Type: Spontaneous
  Country: CA (occurrence: CA)
  Receive Date: 20250819
  Receipt Date: 20250923
  Transmission Date: 20251021
  Serious: No
  Sender: PFIZER
  Company Number: CA-PFIZER INC-202500158917

PATIENT
  Age: 13 Year
  Sex: Female

DRUGS (4)
  1. ABRILADA [Suspect]
     Active Substance: ADALIMUMAB-AFZB
     Indication: Uveitis
     Route: 058
     Dates: start: 20240410
  2. ABRILADA [Suspect]
     Active Substance: ADALIMUMAB-AFZB
     Dosage: 40 MG, WEEKLY
     Route: 058
     Dates: start: 20250805
  3. PREDNISONE [Concomitant]
     Active Substance: PREDNISONE
  4. METHOTREXATE [Concomitant]
     Active Substance: METHOTREXATE

REACTIONS (1)
  - Device mechanical issue [Unknown]

NARRATIVE: CASE EVENT DATE: 20250805
